FAERS Safety Report 20515747 (Version 2)
Quarter: 2022Q4

REPORT INFORMATION
  Report Type: Report from Study
  Country: US (occurrence: US)
  Receive Date: 20220224
  Receipt Date: 20221101
  Transmission Date: 20230112
  Serious: No
  Sender: FDA-Public Use
  Company Number: US-ACADIA PHARMACEUTICALS INC.-ACA-2022-PIM-000407

PATIENT
  Age: 73 Year
  Sex: Female
  Weight: 57 kg

DRUGS (18)
  1. NUPLAZID [Suspect]
     Active Substance: PIMAVANSERIN TARTRATE
     Indication: Hallucination
     Dosage: 34 MILLIGRAM, QD
     Route: 048
     Dates: start: 20210428
  2. NUPLAZID [Suspect]
     Active Substance: PIMAVANSERIN TARTRATE
     Indication: Delusion
     Dosage: 34 MILLIGRAM, QD
     Route: 048
     Dates: start: 20220520
  3. NUPLAZID [Suspect]
     Active Substance: PIMAVANSERIN TARTRATE
     Indication: Parkinson^s disease
  4. RISPERIDONE [Concomitant]
     Active Substance: RISPERIDONE
     Dosage: 0.5 MG
  5. ELAVIL [Concomitant]
     Active Substance: AMITRIPTYLINE HYDROCHLORIDE
     Dosage: 25 MILLIGRAM (1/2 TABLET- 12.52 MG)
     Dates: start: 20190420
  6. TESSALON [Concomitant]
     Active Substance: BENZONATATE
     Indication: Cough
     Dosage: 100 MILLIGRAM THREE TIMES AS NEEDED
     Route: 048
     Dates: start: 20190420
  7. SINEMET [Concomitant]
     Active Substance: CARBIDOPA\LEVODOPA
     Dosage: 25-100 MG, 1 TAB ORAL AT 7AM AND 11AM; 1/2 TAB AT 1PM; 1 TAB AT 3PM AND 5PM
     Route: 048
     Dates: start: 20210316, end: 20210625
  8. KLONOPIN [Concomitant]
     Active Substance: CLONAZEPAM
     Dosage: 1 MILLIGRAM
     Dates: start: 20201118, end: 20210521
  9. KLONOPIN [Concomitant]
     Active Substance: CLONAZEPAM
     Dosage: 0.5 MG 2 TIMES DAILY
     Route: 048
  10. TYLENOL [Concomitant]
     Active Substance: ACETAMINOPHEN
     Dosage: 325 MILLIGRAM EVERY 4 TO 6 HOURS AS NEEDED
     Route: 048
     Dates: start: 20080619
  11. ALBUTEROL [Concomitant]
     Active Substance: ALBUTEROL
     Dosage: INHALE 1-2 PUFFS EVERY 4-6 HOURS AS NEEDED
  12. ATROVENT [Concomitant]
     Active Substance: IPRATROPIUM BROMIDE
     Dosage: 0.03% NASAL SPRAY AS NEEDED
  13. PRILOSEC [Concomitant]
     Active Substance: OMEPRAZOLE MAGNESIUM
     Dosage: 40 MILLIGRAM, QD
     Route: 048
  14. ZOLOFT [Concomitant]
     Active Substance: SERTRALINE HYDROCHLORIDE
     Dosage: 100 MILLIGRAM (0.5 TAB 3 TIMES DAILY)
     Route: 048
     Dates: start: 20201118, end: 20210816
  15. KENALOG [Concomitant]
     Active Substance: TRIAMCINOLONE ACETONIDE
     Dosage: 0.1% 2 DAILY AFFECTED AREAS ON ELBOWS
     Dates: start: 20210222
  16. SEROQUEL [Concomitant]
     Active Substance: QUETIAPINE FUMARATE
     Dosage: 50 MILLIGRAM (1 TABLET 2 TIMES DAILY)
     Route: 048
     Dates: start: 20210416, end: 20210519
  17. AMITRIPTYLINE [Concomitant]
     Active Substance: AMITRIPTYLINE
     Dosage: 25 MILLIGRAM
  18. CARBIDOPA\LEVODOPA [Concomitant]
     Active Substance: CARBIDOPA\LEVODOPA
     Dosage: 25-100MG

REACTIONS (2)
  - Abdominal pain [Not Recovered/Not Resolved]
  - Abdominal pain upper [Not Recovered/Not Resolved]

NARRATIVE: CASE EVENT DATE: 20210501
